FAERS Safety Report 15406551 (Version 6)
Quarter: 2021Q2

REPORT INFORMATION
  Report Type: Report from Study
  Country: ES (occurrence: ES)
  Receive Date: 20180920
  Receipt Date: 20210428
  Transmission Date: 20210716
  Serious: Yes (Hospitalization)
  Sender: FDA-Public Use
  Company Number: ES-ROCHE-2185907

PATIENT
  Age: 63 Year
  Sex: Female
  Weight: 52.9 kg

DRUGS (9)
  1. CHOLECALCIFEROL [Concomitant]
     Active Substance: CHOLECALCIFEROL
     Indication: OSTEOPOROSIS
     Route: 048
     Dates: start: 2017
  2. MIOSAN [Concomitant]
     Active Substance: CYCLOBENZAPRINE
     Indication: COUGH
     Route: 048
     Dates: start: 20180806, end: 20180816
  3. URSODEOXYCHOLIC ACID [Concomitant]
     Active Substance: URSODIOL
     Indication: PRIMARY BILIARY CHOLANGITIS
     Route: 048
     Dates: start: 1994
  4. SERTRALIN [Concomitant]
     Active Substance: SERTRALINE HYDROCHLORIDE
     Indication: DEPRESSION
     Route: 048
     Dates: start: 2003
  5. LACTULOSE. [Concomitant]
     Active Substance: LACTULOSE
     Indication: CONSTIPATION
     Route: 048
     Dates: start: 20180919
  6. BROMAZEPAM [Concomitant]
     Active Substance: BROMAZEPAM
     Indication: ANXIETY
     Dosage: PRN (AS NEEDED)
     Route: 048
     Dates: start: 20180621
  7. SERTRALIN [Concomitant]
     Active Substance: SERTRALINE HYDROCHLORIDE
     Route: 048
     Dates: start: 20180902, end: 20181011
  8. ALECTINIB. [Suspect]
     Active Substance: ALECTINIB
     Indication: NON-SMALL CELL LUNG CANCER
     Dosage: MOST RECENT DOSE (900 MG) ADMINISTERED PRIOR TO SAE ONSET: 12/SEP/2018
     Route: 048
     Dates: start: 20180427
  9. ALPRAZOLAM. [Concomitant]
     Active Substance: ALPRAZOLAM
     Indication: DEPRESSION
     Dosage: PRN (AS NEEDED)
     Route: 048
     Dates: start: 2008, end: 20180913

REACTIONS (1)
  - Major depression [Recovered/Resolved]

NARRATIVE: CASE EVENT DATE: 20180913
